FAERS Safety Report 8712226 (Version 2)
Quarter: 2012Q4

REPORT INFORMATION
  Report Type: 
  Country: JP (occurrence: JP)
  Receive Date: 20120807
  Receipt Date: 20120913
  Transmission Date: 20130627
  Serious: Yes (Death)
  Sender: FDA-Public Use
  Company Number: JP-AMGEN-JPNSP2012048529

PATIENT
  Age: 76 Year
  Sex: Male

DRUGS (2)
  1. RANMARK [Suspect]
     Indication: PRODUCT USED FOR UNKNOWN INDICATION
     Dosage: Unknown
     Route: 058
     Dates: start: 20120710
  2. IRESSA [Suspect]
     Route: 048
     Dates: start: 20120602, end: 20120718

REACTIONS (1)
  - Interstitial lung disease [Fatal]
